FAERS Safety Report 7953542 (Version 2)
Quarter: 2022Q4

REPORT INFORMATION
  Report Type: Spontaneous
  Country: AU (occurrence: AU)
  Receive Date: 20110520
  Receipt Date: 20221117
  Transmission Date: 20230113
  Serious: Yes (Other)
  Sender: FDA-Public Use
  Company Number: None

PATIENT
  Age: 45 Year
  Sex: Female

DRUGS (1)
  1. IBUPROFEN [Suspect]
     Active Substance: IBUPROFEN
     Indication: Product used for unknown indication
     Dosage: UNK
     Route: 065

REACTIONS (9)
  - Dental caries [Unknown]
  - Microcytic anaemia [Unknown]
  - Oesophageal stenosis [Unknown]
  - Toxicity to various agents [Recovered/Resolved]
  - Renal tubular acidosis [Recovered/Resolved]
  - Gastric ulcer [Unknown]
  - Lethargy [Unknown]
  - Decreased appetite [Unknown]
  - Overdose [Unknown]
